FAERS Safety Report 4694436-1 (Version None)
Quarter: 2005Q2

REPORT INFORMATION
  Report Type: 
  Country: None (occurrence: None)
  Receive Date: 20050620
  Receipt Date: 20050608
  Transmission Date: 20051028
  Serious: Yes (Hospitalization)
  Sender: FDA-Public Use
  Company Number: AU-JNJFOC-20050603749

PATIENT
  Age: 86 Year
  Sex: Female

DRUGS (3)
  1. TRAMADOL HCL [Suspect]
     Indication: HERPES ZOSTER
     Route: 049
  2. VALTREX [Suspect]
     Indication: HERPES ZOSTER
     Route: 049
  3. ASPIRIN [Concomitant]
     Route: 065

REACTIONS (2)
  - CONFUSIONAL STATE [None]
  - HYPONATRAEMIA [None]
